FAERS Safety Report 24451757 (Version 1)
Quarter: 2024Q4

REPORT INFORMATION
  Report Type: Spontaneous
  Country: RU (occurrence: RU)
  Receive Date: 20241017
  Receipt Date: 20241017
  Transmission Date: 20250115
  Serious: Yes (Hospitalization, Other)
  Sender: PIERREL
  Company Number: RU-PIERREL S.P.A.-2024PIR00064

PATIENT
  Sex: Female
  Weight: 53 kg

DRUGS (1)
  1. ORABLOC [Suspect]
     Active Substance: ARTICAINE HYDROCHLORIDE\EPINEPHRINE BITARTRATE
     Indication: Local anaesthesia
     Dosage: 1.8 ML, ONCE
     Route: 004

REACTIONS (4)
  - Loss of consciousness [Unknown]
  - Seizure [Unknown]
  - Hypertensive crisis [Unknown]
  - Electroencephalogram abnormal [Unknown]
